FAERS Safety Report 12416786 (Version 3)
Quarter: 2016Q3

REPORT INFORMATION
  Report Type: Spontaneous
  Country: JP (occurrence: JP)
  Receive Date: 20160530
  Receipt Date: 20160718
  Transmission Date: 20161109
  Serious: Yes (Life-Threatening, Hospitalization, Other)
  Sender: FDA-Public Use
  Company Number: JP-PFIZER INC-2016276488

PATIENT
  Age: 83 Year
  Sex: Female
  Weight: 59.3 kg

DRUGS (2)
  1. TRAMCET [Suspect]
     Active Substance: ACETAMINOPHEN\TRAMADOL
     Indication: POST HERPETIC NEURALGIA
     Dosage: 1 DF, UNK
     Route: 048
     Dates: start: 20160421, end: 20160519
  2. LYRICA [Suspect]
     Active Substance: PREGABALIN
     Indication: POST HERPETIC NEURALGIA
     Dosage: 75 MG, DAILY
     Route: 048
     Dates: start: 20160407, end: 20160519

REACTIONS (18)
  - Blood pH decreased [Unknown]
  - Nausea [Unknown]
  - Chest discomfort [Unknown]
  - Blood potassium increased [Unknown]
  - Dyspnoea [Unknown]
  - Seizure [Recovered/Resolved]
  - Loss of consciousness [Recovered/Resolved]
  - White blood cell count increased [Unknown]
  - C-reactive protein increased [Unknown]
  - Incontinence [Unknown]
  - Tongue biting [Unknown]
  - Hypotension [Unknown]
  - Depressed level of consciousness [Recovered/Resolved]
  - Respiratory failure [Recovering/Resolving]
  - Aspiration [Unknown]
  - Platelet count increased [Unknown]
  - Vomiting [Unknown]
  - Hypoxia [Unknown]

NARRATIVE: CASE EVENT DATE: 20160413
